FAERS Safety Report 15877056 (Version 3)
Quarter: 2019Q1

REPORT INFORMATION
  Report Type: Spontaneous
  Country: BE (occurrence: BE)
  Receive Date: 20190128
  Receipt Date: 20190215
  Transmission Date: 20190417
  Serious: Yes (Other)
  Sender: FDA-Public Use
  Company Number: BE-SA-2018SA320961

PATIENT
  Age: 40 Year
  Sex: Female

DRUGS (3)
  1. LEMTRADA [Suspect]
     Active Substance: ALEMTUZUMAB
     Dosage: UNK UNK, UNK
     Route: 041
  2. METHYLPREDNISOLONE [METHYLPREDNISOLONE ACETATE] [Concomitant]
     Dosage: UNK UNK, UNK
     Route: 065
  3. LEMTRADA [Suspect]
     Active Substance: ALEMTUZUMAB
     Dosage: UNK UNK, UNK
     Route: 041

REACTIONS (18)
  - Protein total decreased [Unknown]
  - Viral infection [Unknown]
  - Blood albumin increased [Unknown]
  - White blood cell count decreased [Recovered/Resolved]
  - Blood chloride increased [Not Recovered/Not Resolved]
  - Lymphocyte count decreased [Not Recovered/Not Resolved]
  - Blood lactate dehydrogenase decreased [Unknown]
  - Nasopharyngitis [Unknown]
  - Platelet count decreased [Unknown]
  - Leukopenia [Recovered/Resolved]
  - T-lymphocyte count decreased [Unknown]
  - Lymphopenia [Not Recovered/Not Resolved]
  - Low density lipoprotein decreased [Unknown]
  - Monocyte count decreased [Not Recovered/Not Resolved]
  - B-lymphocyte count increased [Unknown]
  - Blood cholesterol decreased [Not Recovered/Not Resolved]
  - Lymphocyte percentage decreased [Not Recovered/Not Resolved]
  - CD4 lymphocytes decreased [Unknown]

NARRATIVE: CASE EVENT DATE: 20180907
